FAERS Safety Report 20674463 (Version 3)
Quarter: 2022Q2

REPORT INFORMATION
  Report Type: Spontaneous
  Country: US (occurrence: US)
  Receive Date: 20220405
  Receipt Date: 20220523
  Transmission Date: 20220721
  Serious: No
  Sender: FDA-Public Use
  Company Number: US-PFIZER INC-202101723608

PATIENT
  Age: 78 Year
  Sex: Female
  Weight: 33.79 kg

DRUGS (1)
  1. SOMATROPIN [Suspect]
     Active Substance: SOMATROPIN
     Dosage: 0.8 MG

REACTIONS (3)
  - Weight decreased [Unknown]
  - Malaise [Unknown]
  - Intentional product misuse [Unknown]
